FAERS Safety Report 14207843 (Version 1)
Quarter: 2017Q4

REPORT INFORMATION
  Report Type: Spontaneous
  Country: FR (occurrence: FR)
  Receive Date: 20171121
  Receipt Date: 20171121
  Transmission Date: 20180321
  Serious: Yes (Disabling, Other)
  Sender: FDA-Public Use
  Company Number: FR-MERCK KGAA-2034733

PATIENT
  Age: 63 Year
  Sex: Female

DRUGS (1)
  1. NOVOTHYROX [Suspect]
     Active Substance: LEVOTHYROXINE SODIUM
     Indication: HYPOTHYROIDISM
     Dates: start: 201705

REACTIONS (5)
  - Muscle spasms [None]
  - Arthralgia [None]
  - Fatigue [None]
  - Hyperthyroidism [None]
  - Sleep disorder [None]

NARRATIVE: CASE EVENT DATE: 201705
